FAERS Safety Report 8760454 (Version 2)
Quarter: 2013Q2

REPORT INFORMATION
  Report Type: Spontaneous
  Country: US (occurrence: US)
  Receive Date: 20120830
  Receipt Date: 20130418
  Transmission Date: 20140414
  Serious: No
  Sender: FDA-Public Use
  Company Number: US-009507513-1208USA005081

PATIENT
  Sex: Female
  Weight: 67.57 kg

DRUGS (1)
  1. MIRALAX [Suspect]
     Indication: BOWEL MOVEMENT IRREGULARITY
     Dosage: UNK, QD
     Route: 048
     Dates: start: 2009

REACTIONS (2)
  - Abnormal faeces [Recovered/Resolved]
  - Incorrect drug administration duration [Unknown]
